FAERS Safety Report 25003116 (Version 1)
Quarter: 2025Q1

REPORT INFORMATION
  Report Type: Report from Study
  Country: US (occurrence: US)
  Receive Date: 20250224
  Receipt Date: 20250224
  Transmission Date: 20250409
  Serious: Yes (Death, Other)
  Sender: TAKEDA
  Company Number: US-TAKEDA-2025TUS018982

PATIENT
  Age: 85 Year
  Sex: Male

DRUGS (7)
  1. IXAZOMIB [Suspect]
     Active Substance: IXAZOMIB
     Indication: Plasma cell myeloma
  2. IXAZOMIB [Suspect]
     Active Substance: IXAZOMIB
     Indication: Agranulocytosis
  3. POMALYST [Suspect]
     Active Substance: POMALIDOMIDE
     Indication: Plasma cell myeloma
  4. POMALYST [Suspect]
     Active Substance: POMALIDOMIDE
     Indication: Agranulocytosis
  5. POMALYST [Concomitant]
     Active Substance: POMALIDOMIDE
     Indication: Plasma cell myeloma
  6. POMALYST [Concomitant]
     Active Substance: POMALIDOMIDE
     Indication: Agranulocytosis
  7. DEFERASIROX [Concomitant]
     Active Substance: DEFERASIROX

REACTIONS (1)
  - Death [Fatal]

NARRATIVE: CASE EVENT DATE: 20250215
